FAERS Safety Report 8559914-3 (Version None)
Quarter: 2012Q3

REPORT INFORMATION
  Report Type: 
  Country: None (occurrence: None)
  Receive Date: 20120802
  Receipt Date: 20120730
  Transmission Date: 20120928
  Serious: Yes (Other)
  Sender: FDA-Public Use
  Company Number: PHHY2012AU051244

PATIENT
  Age: 37 Year
  Sex: Female

DRUGS (2)
  1. CYCLOSPORINE [Suspect]
     Indication: NODULAR VASCULITIS
     Dosage: ALTERNATING 300 MG AND 350 MG DAILY
     Route: 048
     Dates: start: 20020801
  2. PREDNISOLONE [Concomitant]

REACTIONS (6)
  - XEROSIS [None]
  - YELLOW SKIN [None]
  - NO THERAPEUTIC RESPONSE [None]
  - LIVER FUNCTION TEST ABNORMAL [None]
  - FLUID OVERLOAD [None]
  - SKIN HYPERPIGMENTATION [None]
